FAERS Safety Report 15707851 (Version 1)
Quarter: 2018Q4

REPORT INFORMATION
  Report Type: Spontaneous
  Country: GB (occurrence: GB)
  Receive Date: 20181211
  Receipt Date: 20181211
  Transmission Date: 20190205
  Serious: Yes (Hospitalization)
  Sender: FDA-Public Use
  Company Number: GB-AMERIGEN PHARMACEUTICALS, INC-2018AMG000029

PATIENT

DRUGS (1)
  1. INDAPAMIDE, USP [Suspect]
     Active Substance: INDAPAMIDE
     Indication: HYPERTENSION
     Dosage: 2.5 MG, OD
     Route: 065

REACTIONS (1)
  - Choroidal effusion [Recovered/Resolved]
